FAERS Safety Report 7383849-5 (Version None)
Quarter: 2011Q1

REPORT INFORMATION
  Report Type: 
  Country: None (occurrence: None)
  Receive Date: 20110330
  Receipt Date: 20110321
  Transmission Date: 20110831
  Serious: Yes (Hospitalization)
  Sender: FDA-Public Use
  Company Number: FR-ASTRAZENECA-2011SE16919

PATIENT
  Age: 23382 Day
  Sex: Female

DRUGS (5)
  1. MERONEM [Suspect]
     Indication: INTERVERTEBRAL DISCITIS
     Route: 042
     Dates: start: 20101124, end: 20110107
  2. FOSFOCINA [Suspect]
     Indication: INTERVERTEBRAL DISCITIS
     Route: 042
     Dates: start: 20101123, end: 20110107
  3. VENLAFAXINE ACTAVIS [Suspect]
     Indication: INTERVERTEBRAL DISCITIS
     Route: 048
     Dates: start: 20101119, end: 20110107
  4. CIPROFLOXACINE MERCK [Suspect]
     Indication: INTERVERTEBRAL DISCITIS
     Route: 048
     Dates: start: 20101129, end: 20110107
  5. FLUCONAZOLE ARROW [Suspect]
     Indication: INTERVERTEBRAL DISCITIS
     Route: 048
     Dates: start: 20101123, end: 20110107

REACTIONS (3)
  - PYREXIA [None]
  - RASH PUSTULAR [None]
  - EOSINOPHILIA [None]
